FAERS Safety Report 24184571 (Version 1)
Quarter: 2024Q3

REPORT INFORMATION
  Report Type: Spontaneous
  Country: CN (occurrence: CN)
  Receive Date: 20240807
  Receipt Date: 20240807
  Transmission Date: 20241016
  Serious: Yes (Other)
  Sender: JOHNSON AND JOHNSON
  Company Number: CN-JNJFOC-20240802195

PATIENT

DRUGS (1)
  1. TOPAMAX [Suspect]
     Active Substance: TOPIRAMATE
     Indication: Tourette^s disorder
     Dosage: WITH AN INITIAL DOSE OF 0.5-1.0 MG/KG. THE DOSE SHOULD BE INCREASED BY 0.5 MG/KG PER WEEK ACCORDING
     Route: 048

REACTIONS (7)
  - Drug dependence [Unknown]
  - Unresponsive to stimuli [Unknown]
  - Dizziness [Unknown]
  - Lethargy [Unknown]
  - Decreased appetite [Unknown]
  - Drug ineffective [Unknown]
  - Off label use [Unknown]
